FAERS Safety Report 7471789-2 (Version None)
Quarter: 2011Q2

REPORT INFORMATION
  Report Type: 
  Country: None (occurrence: None)
  Receive Date: 20110511
  Receipt Date: 20100507
  Transmission Date: 20111010
  Serious: No
  Sender: FDA-Public Use
  Company Number: A0858703A

PATIENT
  Age: 60 Year
  Sex: Female

DRUGS (6)
  1. CHEMOTHERAPY [Concomitant]
  2. THYROID MEDICATION [Concomitant]
  3. ANTI-NAUSEA DRUGS [Concomitant]
  4. STEROID [Concomitant]
  5. TYKERB [Suspect]
     Indication: BREAST CANCER
     Dosage: 4TAB PER DAY
     Route: 048
     Dates: start: 20100420
  6. PROTONIX [Concomitant]

REACTIONS (3)
  - FATIGUE [None]
  - NAUSEA [None]
  - RASH MACULAR [None]
